FAERS Safety Report 14431933 (Version 3)
Quarter: 2018Q1

REPORT INFORMATION
  Report Type: Other
  Country: GB (occurrence: GB)
  Receive Date: 20180124
  Receipt Date: 20180216
  Transmission Date: 20180509
  Serious: Yes (Disabling)
  Sender: FDA-Public Use
  Company Number: GB-CELLTRION INC.-2018GB017515

PATIENT

DRUGS (5)
  1. FERROUS SULFATE ANHYDROUS. [Concomitant]
     Active Substance: FERROUS SULFATE ANHYDROUS
  2. INFLIXIMAB (UNKNOWN) [Suspect]
     Active Substance: INFLIXIMAB
     Indication: CROHN^S DISEASE
     Dosage: 300 MG, UNK
     Route: 042
     Dates: start: 20171013, end: 20171013
  3. HYDROXOCOBALAMIN [Concomitant]
     Active Substance: HYDROXOCOBALAMIN
  4. INFLIXIMAB [Concomitant]
     Active Substance: INFLIXIMAB
     Indication: CROHN^S DISEASE
  5. AZATHIOPRINE. [Concomitant]
     Active Substance: AZATHIOPRINE

REACTIONS (2)
  - Product substitution issue [Unknown]
  - Blindness [Recovered/Resolved]

NARRATIVE: CASE EVENT DATE: 20171014
